FAERS Safety Report 9562967 (Version 1)
Quarter: 2013Q3

REPORT INFORMATION
  Report Type: Spontaneous
  Country: CA (occurrence: CA)
  Receive Date: 20130927
  Receipt Date: 20130927
  Transmission Date: 20140515
  Serious: Yes (Other)
  Sender: FDA-Public Use
  Company Number: CA-MYLANLABS-2013S1021013

PATIENT
  Age: 65 Year
  Sex: Female

DRUGS (4)
  1. CYCLOPHOSPHAMIDE [Suspect]
     Indication: BREAST CANCER STAGE I
     Route: 065
  2. METHOTREXATE [Suspect]
     Indication: BREAST CANCER STAGE I
     Route: 065
  3. FLUOROURACIL [Suspect]
     Indication: BREAST CANCER STAGE I
     Route: 065
  4. EXEMESTANE [Suspect]
     Indication: BREAST CANCER STAGE I
     Route: 065

REACTIONS (1)
  - Cognitive disorder [Recovered/Resolved]
